FAERS Safety Report 25342937 (Version 1)
Quarter: 2025Q2

REPORT INFORMATION
  Report Type: Spontaneous
  Country: AT (occurrence: AT)
  Receive Date: 20250521
  Receipt Date: 20250521
  Transmission Date: 20250717
  Serious: Yes (Other)
  Sender: AMGEN
  Company Number: AT-AMGEN-AUTSP2025096070

PATIENT
  Age: 26 Year
  Sex: Male

DRUGS (1)
  1. ADALIMUMAB [Suspect]
     Active Substance: ADALIMUMAB
     Indication: Colitis ulcerative
     Route: 065
     Dates: start: 201812, end: 202002

REACTIONS (3)
  - Colitis ulcerative [Unknown]
  - Multiple sclerosis [Unknown]
  - Campylobacter gastroenteritis [Unknown]

NARRATIVE: CASE EVENT DATE: 20210101
